FAERS Safety Report 15117942 (Version 1)
Quarter: 2018Q3

REPORT INFORMATION
  Report Type: Spontaneous
  Country: AU (occurrence: AU)
  Receive Date: 20180706
  Receipt Date: 20180706
  Transmission Date: 20181010
  Serious: Yes (Other)
  Sender: FDA-Public Use
  Company Number: AU-009507513-1807AUS001644

PATIENT
  Age: 36 Year
  Sex: Female

DRUGS (10)
  1. POSACONAZOLE [Suspect]
     Active Substance: POSACONAZOLE
     Indication: PRODUCT USED FOR UNKNOWN INDICATION
     Dosage: 200 MG, TID
     Dates: start: 20101208
  2. IDARUBICIN HYDROCHLORIDE. [Suspect]
     Active Substance: IDARUBICIN HYDROCHLORIDE
     Dosage: 12MG/M2, QD, DAY 1?3
     Route: 042
     Dates: start: 20101208
  3. FLUDARABINE PHOSPHATE. [Suspect]
     Active Substance: FLUDARABINE PHOSPHATE
     Indication: ACUTE MONOCYTIC LEUKAEMIA
     Dosage: UNK
  4. IDARUBICIN HYDROCHLORIDE. [Suspect]
     Active Substance: IDARUBICIN HYDROCHLORIDE
     Dosage: 12 MG/M2, QD (DAY 1 ? 2)
     Route: 042
     Dates: start: 20110107
  5. IDARUBICIN HYDROCHLORIDE. [Suspect]
     Active Substance: IDARUBICIN HYDROCHLORIDE
     Dosage: 12 MG/M2, QD (DAY 1 ? 2)
     Route: 042
     Dates: start: 20110202
  6. CYTARABINE. [Suspect]
     Active Substance: CYTARABINE
     Dosage: 3000 MG/M2, BID (DAYY 1, 3, 5, 7)
     Route: 042
     Dates: start: 20110202
  7. POSACONAZOLE [Suspect]
     Active Substance: POSACONAZOLE
     Dosage: 200 MG, TID
     Dates: start: 20110107
  8. CYTARABINE. [Suspect]
     Active Substance: CYTARABINE
     Dosage: 3000 MG/M2 (DAY 1, 3, 5, 7)
     Route: 042
     Dates: start: 20110107
  9. POSACONAZOLE [Suspect]
     Active Substance: POSACONAZOLE
     Dosage: 200 MG, TID
     Dates: start: 20110202
  10. CYTARABINE. [Suspect]
     Active Substance: CYTARABINE
     Indication: ACUTE MONOCYTIC LEUKAEMIA
     Dosage: 100 MG/M2, QD DAY 1?7
     Route: 042
     Dates: start: 20101208

REACTIONS (1)
  - Platelet count increased [Unknown]

NARRATIVE: CASE EVENT DATE: 20110105
